FAERS Safety Report 15837332 (Version 1)
Quarter: 2018Q4

REPORT INFORMATION
  Report Type: Spontaneous
  Country: US (occurrence: US)
  Receive Date: 20181221
  Receipt Date: 20181221
  Transmission Date: 20190205
  Serious: No
  Sender: FDA-Public Use
  Company Number: None

PATIENT
  Age: 50 Year
  Sex: Male

DRUGS (3)
  1. ONDANSCTRON [Concomitant]
  2. STELARA [Suspect]
     Active Substance: USTEKINUMAB
     Indication: PSORIASIS
     Dosage: ?          OTHER FREQUENCY:EVERY 3 MNTHS ;?
     Route: 058
     Dates: start: 20170922
  3. OXYCOD [Concomitant]

REACTIONS (2)
  - Shoulder operation [None]
  - Rotator cuff repair [None]

NARRATIVE: CASE EVENT DATE: 20181217
